FAERS Safety Report 16043411 (Version 1)
Quarter: 2019Q1

REPORT INFORMATION
  Report Type: Spontaneous
  Country: GR (occurrence: GR)
  Receive Date: 20190306
  Receipt Date: 20190306
  Transmission Date: 20190418
  Serious: Yes (Other)
  Sender: FDA-Public Use
  Company Number: GR-UCBSA-2019008814

PATIENT
  Sex: Female

DRUGS (2)
  1. XOZAL [Suspect]
     Active Substance: LEVOCETIRIZINE
     Indication: PRURITUS
     Dosage: UNKNOWN
  2. LEXOTANIL [Suspect]
     Active Substance: BROMAZEPAM
     Indication: HERPES ZOSTER
     Dosage: 1, DAILY

REACTIONS (3)
  - Product use in unapproved indication [Unknown]
  - Heart rate decreased [Not Recovered/Not Resolved]
  - Pruritus [Unknown]
